FAERS Safety Report 7240308-8 (Version None)
Quarter: 2011Q1

REPORT INFORMATION
  Report Type: 
  Country: None (occurrence: None)
  Receive Date: 20110124
  Receipt Date: 20110111
  Transmission Date: 20110831
  Serious: Yes (Hospitalization, Other)
  Sender: FDA-Public Use
  Company Number: US-PFIZER INC-2010170086

PATIENT
  Age: 16 Year
  Sex: Female

DRUGS (11)
  1. QUETIAPINE [Suspect]
     Dosage: 50 MG, 2X/DAY (IN THE AM AND IN THE AFTERNOON)
     Dates: start: 20080613
  2. QUETIAPINE [Suspect]
     Dosage: 600 MG, 1X/DAY
     Dates: start: 20080714
  3. QUETIAPINE [Suspect]
     Dosage: 100 MG, 1X/DAY AT BEDTIME
  4. QUETIAPINE [Suspect]
     Dosage: 100 MG, 3X/DAY
     Dates: start: 20080710
  5. SERTRALINE HYDROCHLORIDE [Suspect]
     Indication: MAJOR DEPRESSION
     Dosage: 50 MG, 1X/DAY
     Dates: start: 20070904, end: 20070924
  6. SERTRALINE HYDROCHLORIDE [Suspect]
     Dosage: 100 MG, 1X/DAY
     Dates: start: 20070925, end: 20080613
  7. VALPROIC ACID [Concomitant]
  8. IBUPROFEN [Suspect]
     Dosage: 200 MG,(37 PILLS/ 200 MG EACH)
     Route: 048
     Dates: start: 20070101, end: 20070101
  9. BUSPIRONE [Suspect]
     Indication: ANXIETY
     Dosage: 5 MG, 2X/DAY
     Dates: start: 20070925, end: 20080613
  10. QUETIAPINE [Suspect]
     Indication: INSOMNIA
     Dosage: 25 MG, 1X/DAY AT BEDTIME
     Dates: start: 20070925, end: 20080714
  11. QUETIAPINE [Suspect]
     Dosage: 400 MG, 1X/DAY
     Dates: start: 20080712

REACTIONS (9)
  - SUICIDE ATTEMPT [None]
  - HYPERSEXUALITY [None]
  - HALLUCINATION, AUDITORY [None]
  - AGITATION [None]
  - CONFUSIONAL STATE [None]
  - THROMBOCYTOPENIA [None]
  - INTENTIONAL OVERDOSE [None]
  - MANIA [None]
  - PARANOIA [None]
